FAERS Safety Report 8113250-8 (Version None)
Quarter: 2012Q1

REPORT INFORMATION
  Report Type: 
  Country: None (occurrence: None)
  Receive Date: 20120203
  Receipt Date: 20120127
  Transmission Date: 20120608
  Serious: Yes (Hospitalization, Other)
  Sender: FDA-Public Use
  Company Number: GB-AMGEN-GBRSP2011057940

PATIENT
  Age: 3 Year
  Sex: Male
  Weight: 14 kg

DRUGS (7)
  1. VENOFER [Concomitant]
     Indication: RENAL FAILURE
  2. ARANESP [Suspect]
     Indication: RENAL FAILURE CHRONIC
     Dosage: 30 MU, QWK
     Dates: start: 20100809, end: 20111104
  3. ENALAPRIL MALEATE [Concomitant]
     Indication: RENAL FAILURE
  4. AMLODIPINE [Concomitant]
     Indication: RENAL FAILURE
  5. ALFACALCIDOL [Concomitant]
     Indication: RENAL FAILURE
  6. ARANESP [Suspect]
     Dosage: 20 MU, QWK
     Dates: start: 20100809, end: 20111104
  7. CALCIUM CARBONATE [Concomitant]
     Indication: RENAL FAILURE

REACTIONS (1)
  - HEPATOBLASTOMA [None]
